FAERS Safety Report 6657377-6 (Version None)
Quarter: 2010Q1

REPORT INFORMATION
  Report Type: 
  Country: None (occurrence: None)
  Receive Date: 20100330
  Receipt Date: 20091218
  Transmission Date: 20100710
  Serious: Yes (Hospitalization)
  Sender: FDA-Public Use
  Company Number: IT-JNJFOC-20090700220

PATIENT
  Sex: Male

DRUGS (3)
  1. LEVOFLOXACIN [Suspect]
     Indication: PYREXIA
     Route: 048
  2. BISOPROLOL [Concomitant]
     Route: 065
  3. LASIX [Concomitant]
     Route: 065

REACTIONS (2)
  - PURPURA [None]
  - RASH PAPULAR [None]
